FAERS Safety Report 15685834 (Version 2)
Quarter: 2019Q1

REPORT INFORMATION
  Report Type: Spontaneous
  Country: US (occurrence: US)
  Receive Date: 20181204
  Receipt Date: 20190211
  Transmission Date: 20190417
  Serious: Yes (Other)
  Sender: FDA-Public Use
  Company Number: US-SA-2018SA325688

PATIENT
  Age: 50 Year
  Sex: Female
  Weight: 53.52 kg

DRUGS (5)
  1. PARAPLATIN [Concomitant]
     Active Substance: CARBOPLATIN
  2. TAXOTERE [Suspect]
     Active Substance: DOCETAXEL
     Dosage: 20-80 MG, Q3W
     Route: 042
     Dates: start: 20100423, end: 20100423
  3. AVASTIN [Concomitant]
     Active Substance: BEVACIZUMAB
  4. HERCEPTIN [Concomitant]
     Active Substance: TRASTUZUMAB
     Dosage: UNK
  5. TAXOTERE [Suspect]
     Active Substance: DOCETAXEL
     Indication: BREAST CANCER FEMALE
     Dosage: 20-80 MG, Q3W
     Route: 042
     Dates: start: 20091207, end: 20091207

REACTIONS (1)
  - Alopecia [Not Recovered/Not Resolved]
